FAERS Safety Report 10169766 (Version 3)
Quarter: 2014Q2

REPORT INFORMATION
  Report Type: Spontaneous
  Country: FR (occurrence: FR)
  Receive Date: 20140513
  Receipt Date: 20140530
  Transmission Date: 20141212
  Serious: Yes (Life-Threatening)
  Sender: FDA-Public Use
  Company Number: FR-TEVA-480336ISR

PATIENT
  Age: 70 Year
  Sex: Male

DRUGS (10)
  1. METHOTREXATE TEVA [Suspect]
     Dosage: 6 GRAM DAILY;
     Route: 042
     Dates: start: 20140322, end: 20140322
  2. INEXIUM 20 MG [Suspect]
     Dosage: 20 MILLIGRAM DAILY;
     Dates: start: 20140305
  3. TADENAN 50 MG [Concomitant]
     Dosage: 50 MILLIGRAM DAILY; LONG STANDING TREATMENT
  4. ACULAR 0.5% [Concomitant]
     Dosage: 3 DOSAGE FORMS DAILY; LEFT EYE/ LONG STANDING TREATMENT
     Route: 047
  5. DEXAFREE [Concomitant]
     Dosage: 3 DOSAGE FORMS DAILY; INTO LEFT EYE AND LONG STANDING TREATMENT
     Route: 047
  6. SOLUMEDROL [Concomitant]
     Dosage: 500 MILLIGRAM DAILY; WITH PROGRESSIVE DECREASE FROM 19-MAR
     Route: 042
  7. MOVICOL [Concomitant]
     Dosage: 6 DOSAGE FORMS DAILY;
  8. LOVENOX [Concomitant]
     Dosage: .4 ML DAILY;
     Route: 058
  9. ATROPINE [Concomitant]
  10. CALCIUM FOLINATE [Concomitant]
     Dates: start: 20140324

REACTIONS (10)
  - Pancytopenia [Recovered/Resolved]
  - Renal failure [Not Recovered/Not Resolved]
  - Hepatocellular injury [Recovering/Resolving]
  - Rash erythematous [Recovered/Resolved]
  - Overdose [Recovered/Resolved]
  - Mucosal inflammation [Recovered/Resolved]
  - Oxygen saturation decreased [Recovered/Resolved]
  - Drug level increased [Recovered/Resolved]
  - Pyrexia [Unknown]
  - Dyspnoea [Unknown]
